FAERS Safety Report 11847685 (Version 1)
Quarter: 2015Q4

REPORT INFORMATION
  Report Type: Spontaneous
  Country: JP (occurrence: JP)
  Receive Date: 20151217
  Receipt Date: 20151217
  Transmission Date: 20160305
  Serious: Yes (Hospitalization, Other)
  Sender: FDA-Public Use
  Company Number: PHJP1900JP001840

PATIENT
  Age: 50 Year
  Sex: Female

DRUGS (4)
  1. VOLTAREN [Suspect]
     Active Substance: DICLOFENAC SODIUM
     Indication: PRODUCT USED FOR UNKNOWN INDICATION
     Dosage: 50 MG, UNK
     Dates: start: 19880916, end: 19880920
  2. KEFRAL [Concomitant]
     Active Substance: CEFACLOR
     Indication: PRODUCT USED FOR UNKNOWN INDICATION
     Dosage: UNK UKN, UNK
     Route: 048
     Dates: start: 19980916
  3. TARIVID                                 /BEL/ [Concomitant]
     Indication: PRODUCT USED FOR UNKNOWN INDICATION
     Dosage: UNK UKN, UNK
     Route: 048
     Dates: start: 198809, end: 199809
  4. VOLTAREN [Suspect]
     Active Substance: DICLOFENAC SODIUM
     Dosage: 50 MG, UNK
     Dates: start: 19880930, end: 19880930

REACTIONS (13)
  - Pleural effusion [Unknown]
  - Rash generalised [Unknown]
  - Pharyngeal erythema [Unknown]
  - Drug eruption [Recovered/Resolved]
  - Cough [Unknown]
  - Pulmonary congestion [Unknown]
  - Respiratory tract irritation [Recovered/Resolved]
  - Drug-induced liver injury [Recovered/Resolved]
  - Dyspnoea [Unknown]
  - Wheezing [Unknown]
  - Pyrexia [Unknown]
  - Liver disorder [Unknown]
  - Blood pressure decreased [Unknown]
